FAERS Safety Report 24733810 (Version 2)
Quarter: 2024Q4

REPORT INFORMATION
  Report Type: Spontaneous
  Country: KR (occurrence: KR)
  Receive Date: 20241214
  Receipt Date: 20241221
  Transmission Date: 20250114
  Serious: Yes (Hospitalization, Other)
  Sender: UNITED THERAPEUTICS
  Company Number: KR-UNITED THERAPEUTICS-UNT-2024-039265

PATIENT
  Age: 67 Year
  Sex: Male

DRUGS (3)
  1. REMODULIN [Suspect]
     Active Substance: TREPROSTINIL
     Indication: Pulmonary arterial hypertension
     Dosage: 0.0448 ?G/KG, CONTINUING
  2. REMODULIN [Suspect]
     Active Substance: TREPROSTINIL
     Dosage: 0.0448 ?G/KG, CONTINUING [RESTARTED]
  3. REMODULIN [Suspect]
     Active Substance: TREPROSTINIL
     Dosage: UNK, CONTINUING

REACTIONS (5)
  - Rib fracture [Recovered/Resolved]
  - Syncope [Recovered/Resolved]
  - Oxygen saturation decreased [Recovered/Resolved]
  - Oedema [Recovered/Resolved]
  - Device breakage [Recovered/Resolved]

NARRATIVE: CASE EVENT DATE: 20241116
